FAERS Safety Report 4469157-0 (Version None)
Quarter: 2004Q4

REPORT INFORMATION
  Report Type: 
  Country: None (occurrence: None)
  Receive Date: 20041005
  Receipt Date: 20040922
  Transmission Date: 20050328
  Serious: Yes (Death, Hospitalization)
  Sender: FDA-Public Use
  Company Number: M2004-1381

PATIENT
  Age: 86 Year
  Sex: Male

DRUGS (3)
  1. RIMACTANE [Suspect]
     Indication: PULMONARY TUBERCULOSIS
  2. ETHAMBUTOL, [Suspect]
     Indication: PULMONARY TUBERCULOSIS
  3. ETHIONAMIDE [Suspect]
     Indication: PULMONARY TUBERCULOSIS

REACTIONS (7)
  - GASTRIC ULCER HAEMORRHAGE [None]
  - HAEMATEMESIS [None]
  - HEPATIC ATROPHY [None]
  - HEPATIC ENCEPHALOPATHY [None]
  - HEPATIC NECROSIS [None]
  - HEPATITIS FULMINANT [None]
  - MELAENA [None]
